FAERS Safety Report 12888731 (Version 1)
Quarter: 2016Q4

REPORT INFORMATION
  Report Type: Spontaneous
  Country: JP (occurrence: JP)
  Receive Date: 20161027
  Receipt Date: 20161027
  Transmission Date: 20170207
  Serious: Yes (Death)
  Sender: FDA-Public Use
  Company Number: PHJP2016JP022469

PATIENT
  Age: 30 Year
  Sex: Male

DRUGS (3)
  1. ZYKADIA [Suspect]
     Active Substance: CERITINIB
     Indication: NON-SMALL CELL LUNG CANCER
     Dosage: 750 MG, QD
     Route: 048
     Dates: start: 20160621, end: 201607
  2. TARCEVA [Suspect]
     Active Substance: ERLOTINIB HYDROCHLORIDE
     Indication: PRODUCT USED FOR UNKNOWN INDICATION
     Dosage: UNK
     Route: 048
     Dates: start: 201608, end: 20161021
  3. PRIMPERAN [Suspect]
     Active Substance: METOCLOPRAMIDE HYDROCHLORIDE
     Indication: PRODUCT USED FOR UNKNOWN INDICATION
     Dosage: UNK
     Route: 065
     Dates: start: 20160628

REACTIONS (7)
  - Non-small cell lung cancer [Fatal]
  - Vomiting [Not Recovered/Not Resolved]
  - Tumour marker increased [Unknown]
  - Pleural effusion [Fatal]
  - Decreased appetite [Not Recovered/Not Resolved]
  - Malignant neoplasm progression [Fatal]
  - Nausea [Not Recovered/Not Resolved]

NARRATIVE: CASE EVENT DATE: 20160628
